FAERS Safety Report 24412052 (Version 1)
Quarter: 2024Q4

REPORT INFORMATION
  Report Type: Spontaneous
  Country: US (occurrence: None)
  Receive Date: 20241007
  Receipt Date: 20241007
  Transmission Date: 20250114
  Serious: Yes (unspecified)
  Sender: Public
  Company Number: None

PATIENT
  Age: 34 Year
  Sex: Male
  Weight: 67.5 kg

DRUGS (1)
  1. FINASTERIDE\MINOXIDIL [Suspect]
     Active Substance: FINASTERIDE\MINOXIDIL
     Indication: Alopecia
     Dosage: OTHER QUANTITY : 90 1ML/PUMP;?
     Route: 061
     Dates: start: 20240905, end: 20240906

REACTIONS (4)
  - Pruritus [None]
  - Rash papular [None]
  - Dyspnoea [None]
  - Rash erythematous [None]

NARRATIVE: CASE EVENT DATE: 20240905
